FAERS Safety Report 24254572 (Version 1)
Quarter: 2024Q3

REPORT INFORMATION
  Report Type: Spontaneous
  Country: JP (occurrence: JP)
  Receive Date: 20240827
  Receipt Date: 20240827
  Transmission Date: 20241017
  Serious: Yes (Hospitalization)
  Sender: JOHNSON AND JOHNSON
  Company Number: JP-JNJFOC-20240754107

PATIENT
  Age: 21 Year
  Sex: Female

DRUGS (1)
  1. MIGLUSTAT [Suspect]
     Active Substance: MIGLUSTAT
     Indication: Niemann-Pick disease
     Dosage: DOSE UNKNOWN
     Route: 048
     Dates: start: 20140630

REACTIONS (2)
  - Dysphagia [Not Recovered/Not Resolved]
  - Niemann-Pick disease [Unknown]
